FAERS Safety Report 4648826-3 (Version None)
Quarter: 2005Q2

REPORT INFORMATION
  Report Type: 
  Country: None (occurrence: None)
  Receive Date: 20050427
  Receipt Date: 20050412
  Transmission Date: 20051028
  Serious: Yes (Disabling)
  Sender: FDA-Public Use
  Company Number: 2005AC00609

PATIENT
  Age: 60 Year
  Sex: Female
  Weight: 78 kg

DRUGS (2)
  1. SEROQUEL [Suspect]
     Indication: SLEEP DISORDER
     Dosage: 50 MG DAILY PO
     Route: 048
     Dates: start: 20050201, end: 20050226
  2. ORFIDAL [Suspect]
     Indication: SLEEP DISORDER
     Dosage: 1 MG DAILY PO
     Route: 048

REACTIONS (4)
  - AGITATION [None]
  - CONFUSIONAL STATE [None]
  - FEELING JITTERY [None]
  - HALLUCINATION [None]
